FAERS Safety Report 23934647 (Version 1)
Quarter: 2024Q2

REPORT INFORMATION
  Report Type: Report from Study
  Country: JP (occurrence: JP)
  Receive Date: 20240603
  Receipt Date: 20240603
  Transmission Date: 20240716
  Serious: Yes (Other)
  Sender: FDA-Public Use
  Company Number: JP-TAKEDA-2023TUS048336

PATIENT
  Age: 9 Year
  Sex: Male
  Weight: 24.2 kg

DRUGS (1)
  1. LISDEXAMFETAMINE DIMESYLATE [Suspect]
     Active Substance: LISDEXAMFETAMINE DIMESYLATE
     Indication: Attention deficit hyperactivity disorder
     Dosage: 30 MILLIGRAM, QD
     Route: 048
     Dates: start: 20220920, end: 20220930

REACTIONS (1)
  - Feeding disorder [Recovered/Resolved]

NARRATIVE: CASE EVENT DATE: 20220921
